FAERS Safety Report 7509019-5 (Version None)
Quarter: 2011Q2

REPORT INFORMATION
  Report Type: 
  Country: None (occurrence: None)
  Receive Date: 20110527
  Receipt Date: 20110523
  Transmission Date: 20111010
  Serious: Yes (Hospitalization, Other)
  Sender: FDA-Public Use
  Company Number: US-ALLERGAN-1107078US

PATIENT
  Age: 16 Year
  Sex: Female
  Weight: 38.549 kg

DRUGS (1)
  1. BOTOX [Suspect]
     Indication: MUSCLE SPASTICITY
     Dosage: 700 UNITS, SINGLE

REACTIONS (3)
  - LARYNGEAL OEDEMA [None]
  - DYSPNOEA [None]
  - MALAISE [None]
